FAERS Safety Report 17264970 (Version 2)
Quarter: 2020Q1

REPORT INFORMATION
  Report Type: Report from Study
  Country: CA (occurrence: CA)
  Receive Date: 20200113
  Receipt Date: 20200206
  Transmission Date: 20200409
  Serious: Yes (Other)
  Sender: FDA-Public Use
  Company Number: CA-BEH-2019102049

PATIENT
  Age: 69 Year
  Sex: Male

DRUGS (20)
  1. VITAMIN D                          /00107901/ [Concomitant]
     Active Substance: ERGOCALCIFEROL
  2. BERINERT [Suspect]
     Active Substance: HUMAN C1-ESTERASE INHIBITOR
     Dosage: 3000 INTERNATIONAL UNIT, QOD
     Route: 042
     Dates: start: 20190505
  3. BERINERT [Suspect]
     Active Substance: HUMAN C1-ESTERASE INHIBITOR
     Indication: HEREDITARY ANGIOEDEMA WITH NORMAL C1 ESTERASE INHIBITOR
     Dosage: 2000 INTERNATIONAL UNIT, QOD
     Route: 042
     Dates: start: 201404, end: 201904
  4. ASPIRINA [Concomitant]
     Active Substance: ASPIRIN
  5. FIRMAGON [Concomitant]
     Active Substance: DEGARELIX ACETATE
     Dosage: UNK
     Route: 058
     Dates: start: 20200107
  6. FIRMAGON [Suspect]
     Active Substance: DEGARELIX ACETATE
     Indication: PROSTATE CANCER
     Dosage: UNK
     Route: 058
     Dates: start: 20200106
  7. BERINERT [Suspect]
     Active Substance: HUMAN C1-ESTERASE INHIBITOR
     Indication: PROPHYLAXIS
     Dosage: 3000 INTERNATIONAL UNIT, QOD
     Route: 042
     Dates: start: 201904
  8. CLONIDINE. [Concomitant]
     Active Substance: CLONIDINE
     Dosage: UNK
     Route: 065
     Dates: start: 20190409, end: 20190513
  9. FIRMAGON [Concomitant]
     Active Substance: DEGARELIX ACETATE
     Indication: PROSTATE CANCER
     Dosage: UNK
     Route: 058
     Dates: start: 20200106
  10. BERINERT [Suspect]
     Active Substance: HUMAN C1-ESTERASE INHIBITOR
     Dosage: 3000 INTERNATIONAL UNIT, QOD
     Route: 042
     Dates: start: 201904
  11. BERINERT [Suspect]
     Active Substance: HUMAN C1-ESTERASE INHIBITOR
     Dosage: 2000 INTERNATIONAL UNIT, PRN
     Route: 042
     Dates: start: 201404
  12. BERINERT [Suspect]
     Active Substance: HUMAN C1-ESTERASE INHIBITOR
     Indication: PROPHYLAXIS
     Dosage: 3000 INTERNATIONAL UNIT, QOD
     Route: 042
     Dates: start: 201904
  13. HYDROCHLOROTHIAZIDE. [Concomitant]
     Active Substance: HYDROCHLOROTHIAZIDE
  14. LIPITOR [Concomitant]
     Active Substance: ATORVASTATIN CALCIUM
  15. DOXAZOSIN [Concomitant]
     Active Substance: DOXAZOSIN MESYLATE
  16. FIRMAGON [Suspect]
     Active Substance: DEGARELIX ACETATE
     Dosage: UNK
     Route: 058
     Dates: start: 20200107
  17. BERINERT [Suspect]
     Active Substance: HUMAN C1-ESTERASE INHIBITOR
     Indication: HEREDITARY ANGIOEDEMA WITH NORMAL C1 ESTERASE INHIBITOR
     Dosage: 2000 INTERNATIONAL UNIT, QOD
     Route: 042
     Dates: start: 201404, end: 201904
  18. BERINERT [Suspect]
     Active Substance: HUMAN C1-ESTERASE INHIBITOR
     Dosage: 3000 INTERNATIONAL UNIT, QOD
     Route: 042
     Dates: start: 201904
  19. BERINERT [Suspect]
     Active Substance: HUMAN C1-ESTERASE INHIBITOR
     Dosage: 3000 INTERNATIONAL UNIT, QOD
     Route: 042
     Dates: start: 20190505
  20. BERINERT [Suspect]
     Active Substance: HUMAN C1-ESTERASE INHIBITOR
     Dosage: 2000 INTERNATIONAL UNIT, PRN
     Route: 042
     Dates: start: 201404

REACTIONS (17)
  - Hypersomnia [Recovered/Resolved with Sequelae]
  - Malaise [Unknown]
  - Malaise [Not Recovered/Not Resolved]
  - Product use in unapproved indication [Unknown]
  - Hereditary angioedema [Not Recovered/Not Resolved]
  - Hereditary angioedema [Recovered/Resolved]
  - Hereditary angioedema [Recovered/Resolved]
  - Feeling hot [Unknown]
  - No adverse event [Unknown]
  - Fatigue [Recovered/Resolved with Sequelae]
  - Hereditary angioedema [Unknown]
  - Hereditary angioedema [Not Recovered/Not Resolved]
  - Hereditary angioedema [Unknown]
  - Skin reaction [Not Recovered/Not Resolved]
  - Skin reaction [Not Recovered/Not Resolved]
  - Prostatic specific antigen increased [Not Recovered/Not Resolved]
  - Asthenia [Not Recovered/Not Resolved]

NARRATIVE: CASE EVENT DATE: 201904
